FAERS Safety Report 18340809 (Version 4)
Quarter: 2021Q1

REPORT INFORMATION
  Report Type: Spontaneous
  Country: PT (occurrence: PT)
  Receive Date: 20201003
  Receipt Date: 20210226
  Transmission Date: 20210419
  Serious: Yes (Hospitalization, Disabling, Other)
  Sender: FDA-Public Use
  Company Number: PT-AUROBINDO-AUR-APL-2020-050088

PATIENT
  Age: 87 Year
  Sex: Male

DRUGS (5)
  1. ACICLOVIR [Suspect]
     Active Substance: ACYCLOVIR
     Indication: HERPES VIRUS INFECTION
  2. QUETIAPINE. [Suspect]
     Active Substance: QUETIAPINE
     Indication: PSYCHOMOTOR HYPERACTIVITY
     Dosage: UNK
     Route: 065
  3. ACICLOVIR [Suspect]
     Active Substance: ACYCLOVIR
     Indication: MENINGOENCEPHALITIS HERPETIC
     Dosage: UNK
     Route: 048
  4. ACYCLOVIR. [Concomitant]
     Active Substance: ACYCLOVIR
     Indication: MENINGOENCEPHALITIS HERPETIC
     Dosage: UNK
     Route: 065
  5. QUETIAPINE. [Concomitant]
     Active Substance: QUETIAPINE
     Indication: PSYCHOMOTOR HYPERACTIVITY
     Dosage: UNK
     Route: 065

REACTIONS (10)
  - Tardive dyskinesia [Recovered/Resolved]
  - Product use in unapproved indication [Unknown]
  - Drug level increased [Recovering/Resolving]
  - Herpes virus infection [Unknown]
  - Overdose [Recovered/Resolved]
  - Acute kidney injury [Recovered/Resolved]
  - Renal impairment [Recovered/Resolved]
  - Dyskinesia [Recovered/Resolved]
  - Accidental overdose [Unknown]
  - Off label use [Unknown]
